FAERS Safety Report 5191550-1 (Version None)
Quarter: 2006Q4

REPORT INFORMATION
  Report Type: 
  Country: None (occurrence: None)
  Receive Date: 20061219
  Receipt Date: 20061211
  Transmission Date: 20070319
  Serious: Yes (Hospitalization)
  Sender: FDA-Public Use
  Company Number: 2005092295

PATIENT
  Age: 35 Year
  Sex: Female

DRUGS (6)
  1. NEURONTIN [Suspect]
     Indication: AFFECTIVE DISORDER
     Dosage: 600 MG (300 MG, 2 IN 1 D)
     Dates: start: 20010101
  2. NEURONTIN [Suspect]
     Indication: ANXIETY DISORDER
     Dosage: 600 MG (300 MG, 2 IN 1 D)
     Dates: start: 20010101
  3. METHADONE HCL [Suspect]
     Dates: start: 20011013
  4. PROMETHAZINE [Suspect]
     Dates: start: 20011013
  5. AMMONIA (AMMONIA) [Suspect]
     Dates: start: 20011013
  6. WASHING AGENT (WASHING AGENT) [Suspect]
     Dates: start: 20011013

REACTIONS (4)
  - DRUG INEFFECTIVE [None]
  - MULTIPLE DRUG OVERDOSE [None]
  - PHYSICAL ASSAULT [None]
  - SUICIDE ATTEMPT [None]
